FAERS Safety Report 8882363 (Version 3)
Quarter: 2013Q1

REPORT INFORMATION
  Report Type: Report from Study
  Country: US (occurrence: US)
  Receive Date: 20121102
  Receipt Date: 20130116
  Transmission Date: 20140127
  Serious: Yes (Other)
  Sender: FDA-Public Use
  Company Number: US-VERTEX PHARMACEUTICAL INC.-2012-023908

PATIENT
  Sex: Male
  Weight: 102 kg

DRUGS (4)
  1. VX-950 (TELAPREVIR) [Suspect]
     Indication: HEPATITIS C
     Dosage: 750 MG, TID
     Route: 048
     Dates: start: 20121010, end: 201301
  2. RIBASPHERE [Suspect]
     Indication: HEPATITIS C
     Dosage: 600 MG, BID
     Route: 048
     Dates: start: 20121010
  3. PEGASYS [Suspect]
     Indication: HEPATITIS C
     Dosage: 180 ?G, QW
     Route: 058
     Dates: start: 20121010
  4. PREDNISONE [Concomitant]
     Dosage: 10 MG, QD
     Route: 048

REACTIONS (5)
  - Peroneal nerve palsy [Unknown]
  - Hypoaesthesia [Unknown]
  - Irritability [Unknown]
  - Oedema peripheral [Unknown]
  - Swelling face [Unknown]
